FAERS Safety Report 8525501-6 (Version None)
Quarter: 2012Q3

REPORT INFORMATION
  Report Type: 
  Country: None (occurrence: None)
  Receive Date: 20120720
  Receipt Date: 20120713
  Transmission Date: 20120928
  Serious: Yes (Other)
  Sender: FDA-Public Use
  Company Number: US-JNJFOC-20120707211

PATIENT
  Sex: Male
  Weight: 77.11 kg

DRUGS (1)
  1. REMICADE [Suspect]
     Indication: CROHN'S DISEASE
     Route: 042
     Dates: start: 20040101

REACTIONS (12)
  - INGUINAL HERNIA [None]
  - HAEMORRHAGE SUBCUTANEOUS [None]
  - EXOSTOSIS [None]
  - TENDON RUPTURE [None]
  - OSTEOPOROSIS [None]
  - CATARACT [None]
  - INCREASED TENDENCY TO BRUISE [None]
  - STAPHYLOCOCCAL INFECTION [None]
  - MUSCULOSKELETAL STIFFNESS [None]
  - LIMB INJURY [None]
  - EXCORIATION [None]
  - OCULAR ICTERUS [None]
